FAERS Safety Report 21280973 (Version 1)
Quarter: 2022Q3

REPORT INFORMATION
  Report Type: Spontaneous
  Country: US (occurrence: None)
  Receive Date: 20220831
  Receipt Date: 20220831
  Transmission Date: 20221026
  Serious: No
  Sender: FDA-Public Use
  Company Number: None

PATIENT
  Age: 41 Year
  Sex: Female

DRUGS (1)
  1. AJOVY [Suspect]
     Active Substance: FREMANEZUMAB-VFRM
     Indication: Migraine without aura
     Dosage: 225 MG EVERY MONTH UNDER THE SKIN?
     Route: 058

REACTIONS (3)
  - Device defective [None]
  - Device leakage [None]
  - Treatment delayed [None]

NARRATIVE: CASE EVENT DATE: 20220825
